FAERS Safety Report 7737481-1 (Version None)
Quarter: 2011Q3

REPORT INFORMATION
  Report Type: 
  Country: None (occurrence: None)
  Receive Date: 20110908
  Receipt Date: 20110901
  Transmission Date: 20111222
  Serious: Yes (Hospitalization)
  Sender: FDA-Public Use
  Company Number: US-GLAXOSMITHKLINE-A0943603A

PATIENT
  Age: 42 Year
  Sex: Female

DRUGS (10)
  1. EPOPROSTENOL SODIUM [Suspect]
     Indication: PRODUCT USED FOR UNKNOWN INDICATION
     Route: 042
  2. COMBIVENT [Concomitant]
  3. REVATIO [Concomitant]
  4. BLINDED STUDY DRUG [Suspect]
     Indication: PULMONARY ARTERIAL HYPERTENSION
     Route: 048
     Dates: start: 20100623, end: 20100818
  5. REMODULIN [Concomitant]
  6. POTASSIUM CHLORIDE [Concomitant]
  7. CELEXA [Concomitant]
  8. CICLETANINE [Suspect]
     Indication: PULMONARY ARTERIAL HYPERTENSION
     Route: 048
     Dates: start: 20100830
  9. KLONOPIN [Concomitant]
  10. LASIX [Concomitant]

REACTIONS (1)
  - DEVICE RELATED INFECTION [None]
